FAERS Safety Report 19591440 (Version 1)
Quarter: 2021Q3

REPORT INFORMATION
  Report Type: Spontaneous
  Country: CH (occurrence: CH)
  Receive Date: 20210722
  Receipt Date: 20210722
  Transmission Date: 20211014
  Serious: Yes (Disabling)
  Sender: FDA-Public Use
  Company Number: CH-SA-2021SA202191

PATIENT
  Age: 63 Year
  Sex: Male

DRUGS (2)
  1. FLUTINASE POLYNEX [Concomitant]
     Indication: POLYP
     Dosage: UNK, BID
     Route: 045
     Dates: start: 20210415
  2. DUPIXENT [Suspect]
     Active Substance: DUPILUMAB
     Indication: CHRONIC RHINOSINUSITIS WITH NASAL POLYPS
     Dosage: 300 MG, 1X
     Route: 058
     Dates: start: 20210531

REACTIONS (3)
  - Joint effusion [Not Recovered/Not Resolved]
  - Arthralgia [Not Recovered/Not Resolved]
  - Joint swelling [Not Recovered/Not Resolved]

NARRATIVE: CASE EVENT DATE: 202106
